FAERS Safety Report 5016650-8 (Version None)
Quarter: 2006Q2

REPORT INFORMATION
  Report Type: 
  Country: None (occurrence: None)
  Receive Date: 20060602
  Receipt Date: 20060518
  Transmission Date: 20061013
  Serious: Yes (Other)
  Sender: FDA-Public Use
  Company Number: DEWYE634218MAY06

PATIENT

DRUGS (1)
  1. ENBREL [Suspect]
     Indication: DRUG USE FOR UNKNOWN INDICATION
     Dosage: UNKNOWN
     Route: 058

REACTIONS (3)
  - ARTHRITIS INFECTIVE [None]
  - LISTERIA SEPSIS [None]
  - LISTERIOSIS [None]
